FAERS Safety Report 5298411-8 (Version None)
Quarter: 2007Q2

REPORT INFORMATION
  Report Type: 
  Country: None (occurrence: None)
  Receive Date: 20070409
  Receipt Date: 20070323
  Transmission Date: 20071010
  Serious: Yes (Other)
  Sender: FDA-Public Use
  Company Number: 012130

PATIENT
  Age: 16 Year
  Sex: Female
  Weight: 86.2 kg

DRUGS (2)
  1. PLAN B [Suspect]
     Indication: CONTRACEPTION
     Dosage: 2 TABLET, SINGLE, ORAL
     Route: 048
     Dates: start: 20070321, end: 20070321
  2. PLAN B [Suspect]
     Indication: CONTRACEPTION
     Dosage: 2 TABLET, SINGLE, ORAL
     Route: 048
     Dates: start: 20070322, end: 20070322

REACTIONS (2)
  - FALL [None]
  - LOSS OF CONSCIOUSNESS [None]
